FAERS Safety Report 4332619-0 (Version None)
Quarter: 2004Q1

REPORT INFORMATION
  Report Type: 
  Country: None (occurrence: None)
  Receive Date: 20040330
  Receipt Date: 20040315
  Transmission Date: 20041129
  Serious: Yes (Other)
  Sender: FDA-Public Use
  Company Number: S04-FRA-00935-01

PATIENT
  Age: 64 Year
  Sex: Female

DRUGS (5)
  1. SEROPRAM (CITALOPRAM HYDROBROMIDE) [Suspect]
     Indication: MAJOR DEPRESSION
     Dosage: 20 MG QD PO
     Route: 048
     Dates: start: 20020314, end: 20030901
  2. SEROPRAM (CITALOPRAM HYDROBROMIDE) [Suspect]
     Indication: MAJOR DEPRESSION
     Dosage: 20 MG QD PO
     Route: 048
     Dates: start: 20031223, end: 20040202
  3. LODALES (SIMVASTATIN0 [Concomitant]
  4. ALPRAZOLAM [Concomitant]
  5. OXAZEPAM [Concomitant]

REACTIONS (2)
  - MYELODYSPLASTIC SYNDROME [None]
  - NEUTROPENIA [None]
